FAERS Safety Report 6148582-6 (Version None)
Quarter: 2009Q2

REPORT INFORMATION
  Report Type: 
  Country: None (occurrence: None)
  Receive Date: 20090406
  Receipt Date: 20090406
  Transmission Date: 20091009
  Serious: Yes (Other)
  Sender: FDA-Public Use
  Company Number: None

PATIENT
  Age: 58 Year
  Sex: Male
  Weight: 68.0396 kg

DRUGS (3)
  1. ALBUTEROL [Suspect]
  2. ALBUTEROL [Suspect]
  3. COMBIVENT [Concomitant]

REACTIONS (4)
  - LUNG NEOPLASM MALIGNANT [None]
  - PNEUMONIA [None]
  - SKIN CANCER [None]
  - SKIN PAPILLOMA [None]
